FAERS Safety Report 24747184 (Version 3)
Quarter: 2025Q1

REPORT INFORMATION
  Report Type: Spontaneous
  Country: US (occurrence: US)
  Receive Date: 20241218
  Receipt Date: 20250203
  Transmission Date: 20250409
  Serious: Yes (Other)
  Sender: AMGEN
  Company Number: US-AMGEN-USASP2024245864

PATIENT
  Sex: Female

DRUGS (2)
  1. PROCYSBI [Suspect]
     Active Substance: CYSTEAMINE BITARTRATE
     Indication: Cystinosis
     Dosage: 525 MILLIGRAM, Q12H, (TAKE 225 MILLIGRAM (3 X 75 MILLIGRAM PACKETS) EVERY 12 HOURS. TAKE WITH 300 MI
     Route: 065
  2. PROCYSBI [Suspect]
     Active Substance: CYSTEAMINE BITARTRATE
     Dosage: 525 MILLIGRAM, Q12H, (TAKE WITH 300 MILLIGRAM (1 X 300 MILLIGRAM PACKET) EVERY 12 HOURS. TAKE 225 MI
     Route: 065

REACTIONS (2)
  - End stage renal disease [Unknown]
  - Gastroenteritis viral [Unknown]
